FAERS Safety Report 21069255 (Version 4)
Quarter: 2024Q3

REPORT INFORMATION
  Report Type: Spontaneous
  Country: US (occurrence: US)
  Receive Date: 20220712
  Receipt Date: 20240722
  Transmission Date: 20241017
  Serious: No
  Sender: ASTELLAS
  Company Number: US-ASTELLAS-2022US007318

PATIENT
  Age: 83 Year
  Sex: Female

DRUGS (3)
  1. MYRBETRIQ [Suspect]
     Active Substance: MIRABEGRON
     Indication: Product used for unknown indication
     Route: 065
  2. MYRBETRIQ [Suspect]
     Active Substance: MIRABEGRON
     Dosage: 50 MG, ONCE DAILY (2 TABLETS OF 25MG DAILY)
     Route: 065
  3. MYRBETRIQ [Suspect]
     Active Substance: MIRABEGRON
     Indication: Product used for unknown indication
     Route: 065
     Dates: start: 20220222

REACTIONS (11)
  - Gastrointestinal disorder [Unknown]
  - Constipation [Unknown]
  - Diarrhoea [Unknown]
  - Gastrooesophageal reflux disease [Unknown]
  - Back pain [Unknown]
  - Dry mouth [Unknown]
  - Dizziness [Unknown]
  - Hypertension [Unknown]
  - Condition aggravated [Unknown]
  - Blood pressure fluctuation [Unknown]
  - Product availability issue [Unknown]
